FAERS Safety Report 5393765-6 (Version None)
Quarter: 2007Q3

REPORT INFORMATION
  Report Type: 
  Country: None (occurrence: None)
  Receive Date: 20070719
  Receipt Date: 20070719
  Transmission Date: 20080115
  Serious: No
  Sender: FDA-Public Use
  Company Number: None

PATIENT
  Age: 68 Year

DRUGS (3)
  1. LISINOPRIL [Suspect]
     Dates: start: 20070601, end: 20070711
  2. HYDROCHLOROTHIAZIDE [Suspect]
     Dates: start: 20070601, end: 20070711
  3. PRINZIDE [Suspect]
     Dates: start: 20070601, end: 20070711

REACTIONS (1)
  - RASH PRURITIC [None]
